FAERS Safety Report 5305659-2 (Version None)
Quarter: 2007Q2

REPORT INFORMATION
  Report Type: 
  Country: None (occurrence: None)
  Receive Date: 20070424
  Receipt Date: 20070419
  Transmission Date: 20071010
  Serious: Yes (Other)
  Sender: FDA-Public Use
  Company Number: BW-BRISTOL-MYERS SQUIBB COMPANY-13754742

PATIENT
  Age: 36 Year
  Sex: Female

DRUGS (3)
  1. EFAVIRENZ [Suspect]
     Dates: start: 20040426
  2. STAVUDINE [Suspect]
     Dates: start: 20040426
  3. LAMIVUDINE [Suspect]
     Dates: start: 20040426

REACTIONS (1)
  - THROMBOCYTOPENIA [None]
